FAERS Safety Report 9918988 (Version 2)
Quarter: 2014Q2

REPORT INFORMATION
  Report Type: Spontaneous
  Country: MX (occurrence: MX)
  Receive Date: 20140224
  Receipt Date: 20140417
  Transmission Date: 20141212
  Serious: Yes (Other)
  Sender: FDA-Public Use
  Company Number: MX-ELI_LILLY_AND_COMPANY-MX201402005218

PATIENT
  Age: 50 Year
  Sex: Female

DRUGS (6)
  1. HUMALOG 25% LISPRO, 75% NPL [Suspect]
     Indication: PRODUCT USED FOR UNKNOWN INDICATION
     Dosage: 16 DF, EACH MORNING
     Route: 065
     Dates: start: 2012
  2. HUMALOG 25% LISPRO, 75% NPL [Suspect]
     Dosage: 10 DF, EACH EVENING
     Route: 065
     Dates: start: 2012
  3. TRAMADOL [Concomitant]
     Indication: DIABETIC NEUROPATHY
  4. KETOROLAC [Concomitant]
     Indication: DIABETIC NEUROPATHY
  5. GABAPENTIN [Concomitant]
     Indication: DIABETIC NEUROPATHY
  6. RIVOTRIL [Concomitant]
     Indication: ANXIETY
     Dosage: 0.5 DF, QD

REACTIONS (6)
  - Syncope [Not Recovered/Not Resolved]
  - Dyspnoea [Not Recovered/Not Resolved]
  - Fatigue [Recovered/Resolved]
  - Pain in extremity [Not Recovered/Not Resolved]
  - Blood glucose increased [Recovered/Resolved]
  - Dizziness [Recovered/Resolved]
